FAERS Safety Report 6021709-2 (Version None)
Quarter: 2008Q4

REPORT INFORMATION
  Report Type: 
  Country: None (occurrence: None)
  Receive Date: 20081229
  Receipt Date: 20081217
  Transmission Date: 20090506
  Serious: Yes (Other)
  Sender: FDA-Public Use
  Company Number: JP-MERCK-0812USA04362

PATIENT
  Age: 54 Year
  Sex: Male

DRUGS (4)
  1. STROMECTOL [Suspect]
     Indication: ACARODERMATITIS
     Route: 048
     Dates: start: 20081212, end: 20081212
  2. ALLELOCK [Concomitant]
     Route: 048
  3. URSO 250 [Concomitant]
     Route: 048
     Dates: start: 20081118
  4. LASIX [Concomitant]
     Route: 048

REACTIONS (1)
  - HYPERAMMONAEMIA [None]
